FAERS Safety Report 9358840 (Version 1)
Quarter: 2013Q2

REPORT INFORMATION
  Report Type: Spontaneous
  Country: US (occurrence: US)
  Receive Date: 20130620
  Receipt Date: 20130620
  Transmission Date: 20140414
  Serious: Yes (Other)
  Sender: FDA-Public Use
  Company Number: US-ELI_LILLY_AND_COMPANY-US201306004182

PATIENT
  Age: 64 Year
  Sex: Female
  Weight: 82.99 kg

DRUGS (2)
  1. HUMALOG LISPRO [Suspect]
     Route: 058
  2. NPH [Concomitant]

REACTIONS (1)
  - Shock hypoglycaemic [Unknown]
